FAERS Safety Report 14188136 (Version 2)
Quarter: 2017Q4

REPORT INFORMATION
  Report Type: Spontaneous
  Country: DE (occurrence: DE)
  Receive Date: 20171114
  Receipt Date: 20171222
  Transmission Date: 20180321
  Serious: Yes (Other)
  Sender: FDA-Public Use
  Company Number: PHHY2017DE166718

PATIENT
  Sex: Female

DRUGS (1)
  1. FORADIL [Suspect]
     Active Substance: FORMOTEROL FUMARATE
     Indication: PRODUCT USED FOR UNKNOWN INDICATION
     Dosage: 12 UG, UNK
     Route: 065
     Dates: start: 2016

REACTIONS (4)
  - Hypertension [Unknown]
  - Eye haemorrhage [Unknown]
  - Musculoskeletal disorder [Unknown]
  - Dysgraphia [Unknown]
